FAERS Safety Report 4539479-3 (Version None)
Quarter: 2004Q4

REPORT INFORMATION
  Report Type: 
  Country: None (occurrence: None)
  Receive Date: 20041228
  Receipt Date: 20041208
  Transmission Date: 20050328
  Serious: Yes (Hospitalization)
  Sender: FDA-Public Use
  Company Number: 200413616EU

PATIENT
  Age: 4 Year
  Sex: Female

DRUGS (5)
  1. FLAGYL [Suspect]
     Indication: BRAIN ABSCESS
     Route: 042
     Dates: start: 19990410, end: 19990503
  2. ROCEPHALIN [Concomitant]
  3. PENICILLIN [Concomitant]
     Route: 042
  4. ACETAMINOPHEN [Concomitant]
     Dosage: DOSE UNIT: MILLIGRAM PER MILLILITRE
     Route: 048
  5. ACETYLSALICYLIC ACID [Concomitant]

REACTIONS (9)
  - CHILLS [None]
  - CONDITION AGGRAVATED [None]
  - HEADACHE [None]
  - ILEUS PARALYTIC [None]
  - MUSCLE CRAMP [None]
  - NEUTROPENIA [None]
  - PYREXIA [None]
  - RASH [None]
  - VOMITING [None]
